FAERS Safety Report 5188126-9 (Version None)
Quarter: 2006Q4

REPORT INFORMATION
  Report Type: 
  Country: None (occurrence: None)
  Receive Date: 20061214
  Receipt Date: 20061208
  Transmission Date: 20070319
  Serious: Yes (Hospitalization, Other)
  Sender: FDA-Public Use
  Company Number: HQWYE706108DEC06

PATIENT
  Age: 21 Year
  Sex: Female

DRUGS (3)
  1. CEFIXIME CHEWABLE [Suspect]
     Indication: PHARYNGITIS
     Dosage: ORAL
     Route: 048
     Dates: start: 20060919, end: 20060927
  2. SULFASALAZINE [Suspect]
     Dosage: ORAL
     Route: 048
     Dates: start: 20060822, end: 20060929
  3. LEVONORGESTREL [Concomitant]

REACTIONS (2)
  - CYTOLYTIC HEPATITIS [None]
  - DRUG RASH WITH EOSINOPHILIA AND SYSTEMIC SYMPTOMS [None]
